FAERS Safety Report 8200723-2 (Version None)
Quarter: 2012Q1

REPORT INFORMATION
  Report Type: 
  Country: None (occurrence: None)
  Receive Date: 20120312
  Receipt Date: 20120307
  Transmission Date: 20120608
  Serious: Yes (Other)
  Sender: FDA-Public Use
  Company Number: DE-ASTELLAS-2012EU001640

PATIENT
  Sex: Female
  Weight: 86 kg

DRUGS (6)
  1. ASPIRIN [Concomitant]
     Dosage: UNK
     Route: 065
  2. VALSARTAN [Concomitant]
     Dosage: UNK
     Route: 065
  3. DIOVAN HCT [Concomitant]
     Dosage: UNK
     Route: 065
  4. NEBIVOLOL HCL [Concomitant]
     Dosage: UNK
     Route: 065
  5. VESICARE [Suspect]
     Indication: INCONTINENCE
     Dosage: 5 MG, UID/QD
     Route: 048
     Dates: start: 20070918, end: 20120131
  6. VESICARE [Suspect]
     Indication: HYPERTONIC BLADDER

REACTIONS (2)
  - GLAUCOMA [None]
  - INTRAOCULAR PRESSURE INCREASED [None]
